FAERS Safety Report 23592137 (Version 1)
Quarter: 2024Q1

REPORT INFORMATION
  Report Type: Spontaneous
  Country: US (occurrence: None)
  Receive Date: 20240302
  Receipt Date: 20240302
  Transmission Date: 20240409
  Serious: Yes (unspecified)
  Sender: FDA-Public Use
  Company Number: None

PATIENT
  Age: 17 Year
  Sex: Male
  Weight: 74.25 kg

DRUGS (3)
  1. MONTELUKAST [Suspect]
     Active Substance: MONTELUKAST SODIUM
     Dosage: OTHER QUANTITY : 1 TABLET(S);?FREQUENCY : AT BEDTIME;?
     Route: 048
  2. VITAMINS [Concomitant]
     Active Substance: VITAMINS
  3. HERBALS [Concomitant]
     Active Substance: HERBALS

REACTIONS (2)
  - Anxiety [None]
  - Abnormal behaviour [None]

NARRATIVE: CASE EVENT DATE: 20240108
